FAERS Safety Report 8816332 (Version 1)
Quarter: 2012Q4

REPORT INFORMATION
  Report Type: Spontaneous
  Country: US (occurrence: None)
  Receive Date: 20120927
  Receipt Date: 20120927
  Transmission Date: 20130627
  Serious: No
  Sender: FDA-Public Use
  Company Number: None

PATIENT
  Sex: Female

DRUGS (1)
  1. PREVIFEM [Suspect]
     Indication: BIRTH CONTROL
     Dosage: 1 QD po
     Route: 048
     Dates: start: 20120913, end: 20120928

REACTIONS (5)
  - Mood altered [None]
  - Crying [None]
  - Vaginal discharge [None]
  - Muscle spasms [None]
  - Product substitution issue [None]
